FAERS Safety Report 5893307-2 (Version None)
Quarter: 2008Q3

REPORT INFORMATION
  Report Type: 
  Country: None (occurrence: None)
  Receive Date: 20080923
  Receipt Date: 20080918
  Transmission Date: 20090109
  Serious: Yes (Hospitalization)
  Sender: FDA-Public Use
  Company Number: B0528221A

PATIENT
  Age: 1 Year
  Sex: Male

DRUGS (2)
  1. CLAVAMOX [Suspect]
     Indication: OTITIS MEDIA
     Route: 048
  2. ERYTHROCIN [Concomitant]
     Route: 065

REACTIONS (2)
  - ALTERED STATE OF CONSCIOUSNESS [None]
  - CONVULSION [None]
